FAERS Safety Report 10020497 (Version 1)
Quarter: 2014Q1

REPORT INFORMATION
  Report Type: Spontaneous
  Country: US (occurrence: US)
  Receive Date: 20140319
  Receipt Date: 20140319
  Transmission Date: 20141002
  Serious: No
  Sender: FDA-Public Use
  Company Number: US-BIOGENIDEC-2014BI022924

PATIENT
  Sex: Male

DRUGS (1)
  1. TECFIDERA [Suspect]
     Indication: MULTIPLE SCLEROSIS
     Route: 048

REACTIONS (4)
  - Tremor [Not Recovered/Not Resolved]
  - Optic nerve injury [Not Recovered/Not Resolved]
  - Optic neuritis [Not Recovered/Not Resolved]
  - Tooth loss [Unknown]
